FAERS Safety Report 11785295 (Version 1)
Quarter: 2015Q4

REPORT INFORMATION
  Report Type: Spontaneous
  Country: US (occurrence: None)
  Receive Date: 20151125
  Receipt Date: 20151125
  Transmission Date: 20160305
  Serious: Yes (Other)
  Sender: FDA-Public Use
  Company Number: None

PATIENT
  Age: 56 Year
  Sex: Male
  Weight: 83.01 kg

DRUGS (8)
  1. VITAMIN B [Concomitant]
     Active Substance: VITAMIN B
  2. PREDNISONE. [Concomitant]
     Active Substance: PREDNISONE
  3. SULFASALAZINE. [Suspect]
     Active Substance: SULFASALAZINE
     Indication: RHEUMATOID ARTHRITIS
     Dosage: 2 TABLET ... DAILY
     Route: 048
     Dates: end: 20151015
  4. VITAMIN D [Concomitant]
     Active Substance: CHOLECALCIFEROL
  5. PROBIOTIC [Concomitant]
     Active Substance: PROBIOTICS NOS
  6. PANTOPRAZOLE [Concomitant]
     Active Substance: PANTOPRAZOLE SODIUM
  7. VITAMIN B12 [Concomitant]
     Active Substance: CYANOCOBALAMIN
  8. VITAMIN D3 [Concomitant]
     Active Substance: CHOLECALCIFEROL

REACTIONS (9)
  - Oropharyngeal pain [None]
  - Lip swelling [None]
  - Abdominal pain upper [None]
  - Blister [None]
  - Stevens-Johnson syndrome [None]
  - Skin reaction [None]
  - Skin exfoliation [None]
  - Insomnia [None]
  - Rash [None]

NARRATIVE: CASE EVENT DATE: 20150921
